FAERS Safety Report 5042526-6 (Version None)
Quarter: 2006Q2

REPORT INFORMATION
  Report Type: 
  Country: None (occurrence: None)
  Receive Date: 20060627
  Receipt Date: 20060609
  Transmission Date: 20061013
  Serious: Yes (Other)
  Sender: FDA-Public Use
  Company Number: 2006001210

PATIENT
  Age: 57 Year
  Sex: Male

DRUGS (3)
  1. TARCEVA [Suspect]
     Indication: BREAST CANCER METASTATIC
     Dosage: SEE IMAGE
     Route: 048
     Dates: start: 20060322, end: 20060406
  2. INSULIN [Concomitant]
  3. AREDIA [Concomitant]

REACTIONS (3)
  - DERMATITIS [None]
  - GENERAL PHYSICAL HEALTH DETERIORATION [None]
  - LEUKOCYTOSIS [None]
